FAERS Safety Report 17429814 (Version 2)
Quarter: 2020Q1

REPORT INFORMATION
  Report Type: Report from Study
  Country: None (occurrence: BR)
  Receive Date: 20200218
  Receipt Date: 20200220
  Transmission Date: 20200409
  Serious: Yes (Hospitalization, Other)
  Sender: FDA-Public Use
  Company Number: BR-ABBVIE-20K-020-3278472-00

PATIENT
  Age: 62 Year
  Sex: Female
  Weight: 45 kg

DRUGS (2)
  1. ARAVA [Suspect]
     Active Substance: LEFLUNOMIDE
     Indication: PRODUCT USED FOR UNKNOWN INDICATION
     Route: 065
  2. HUMIRA [Suspect]
     Active Substance: ADALIMUMAB
     Indication: RHEUMATOID ARTHRITIS
     Route: 058
     Dates: start: 20140128

REACTIONS (7)
  - Diarrhoea [Unknown]
  - Decreased appetite [Unknown]
  - Pyrexia [Recovered/Resolved]
  - Localised infection [Recovered/Resolved]
  - Weight decreased [Recovered/Resolved]
  - Weight decreased [Unknown]
  - Vomiting [Recovered/Resolved]

NARRATIVE: CASE EVENT DATE: 201907
